FAERS Safety Report 6619338-2 (Version None)
Quarter: 2010Q1

REPORT INFORMATION
  Report Type: 
  Country: None (occurrence: None)
  Receive Date: 20100303
  Receipt Date: 20100215
  Transmission Date: 20100710
  Serious: Yes (Death, Hospitalization)
  Sender: FDA-Public Use
  Company Number: AUR-APL-2010-00467

PATIENT
  Age: 34 Year
  Sex: Female

DRUGS (1)
  1. MINOCYCLINE HCL [Suspect]
     Indication: GENITAL INFECTION

REACTIONS (16)
  - ARTHRALGIA [None]
  - CARDIOGENIC SHOCK [None]
  - CARDIOMEGALY [None]
  - CYTOLYTIC HEPATITIS [None]
  - DYSPNOEA [None]
  - EJECTION FRACTION DECREASED [None]
  - EOSINOPHILIC MYOCARDITIS [None]
  - FACE OEDEMA [None]
  - LEFT VENTRICULAR DYSFUNCTION [None]
  - LEUKOCYTOSIS [None]
  - LYMPHADENOPATHY [None]
  - OROPHARYNGEAL PAIN [None]
  - PYREXIA [None]
  - RASH PRURITIC [None]
  - TACHYCARDIA [None]
  - TYPE III IMMUNE COMPLEX MEDIATED REACTION [None]
